FAERS Safety Report 5080115-8 (Version None)
Quarter: 2006Q3

REPORT INFORMATION
  Report Type: 
  Country: None (occurrence: None)
  Receive Date: 20060815
  Receipt Date: 20060803
  Transmission Date: 20061208
  Serious: Yes (Death)
  Sender: FDA-Public Use
  Company Number: DE-BRISTOL-MYERS SQUIBB COMPANY-13464656

PATIENT
  Sex: Male

DRUGS (2)
  1. ABILIFY [Suspect]
  2. OLANZAPINE [Concomitant]

REACTIONS (1)
  - PULMONARY EMBOLISM [None]
